FAERS Safety Report 7304020-9 (Version None)
Quarter: 2011Q1

REPORT INFORMATION
  Report Type: 
  Country: None (occurrence: None)
  Receive Date: 20110221
  Receipt Date: 20110210
  Transmission Date: 20110831
  Serious: Yes (Hospitalization, Other)
  Sender: FDA-Public Use
  Company Number: US-MERCK-1010USA01934

PATIENT
  Age: 67 Year
  Sex: Female
  Weight: 65 kg

DRUGS (10)
  1. FOSAMAX [Suspect]
     Route: 048
     Dates: start: 20081029, end: 20100601
  2. FOSAMAX [Suspect]
     Route: 048
     Dates: start: 20000501, end: 20010401
  3. FOSAMAX [Suspect]
     Route: 048
     Dates: start: 20000501, end: 20010401
  4. FOSAMAX [Suspect]
     Indication: OSTEOPENIA
     Route: 048
     Dates: start: 19990907, end: 20080717
  5. ALENDRONATE SODIUM [Suspect]
     Indication: OSTEOPOROSIS
     Route: 048
     Dates: start: 20081030, end: 20100617
  6. ALENDRONATE SODIUM [Suspect]
     Indication: OSTEOPENIA
     Route: 048
     Dates: start: 20081030, end: 20100617
  7. FOSAMAX [Suspect]
     Indication: OSTEOPOROSIS
     Route: 048
     Dates: start: 19990907, end: 20080717
  8. ACTONEL [Suspect]
     Indication: OSTEOPOROSIS
     Route: 065
     Dates: start: 20080717, end: 20081029
  9. FOSAMAX [Suspect]
     Route: 048
     Dates: start: 20081029, end: 20100601
  10. ACTONEL [Suspect]
     Indication: OSTEOPENIA
     Route: 065
     Dates: start: 20080717, end: 20081029

REACTIONS (29)
  - HAEMORRHAGIC ANAEMIA [None]
  - INSOMNIA [None]
  - FALL [None]
  - FLUID RETENTION [None]
  - ANAEMIA POSTOPERATIVE [None]
  - BLOOD PRESSURE DECREASED [None]
  - CARDIOMEGALY [None]
  - MENSTRUAL DISORDER [None]
  - LIGAMENT SPRAIN [None]
  - VOMITING [None]
  - SPLENIC ARTERY ANEURYSM [None]
  - MALIGNANT HYPERTENSION [None]
  - CONCUSSION [None]
  - ARTERIAL OCCLUSIVE DISEASE [None]
  - NAUSEA [None]
  - PULMONARY HYPERTENSION [None]
  - HYPOTHYROIDISM [None]
  - HOT FLUSH [None]
  - PANCREATITIS ACUTE [None]
  - MEMORY IMPAIRMENT [None]
  - ABDOMINAL PAIN [None]
  - DIABETIC RETINOPATHY [None]
  - ARTHROPATHY [None]
  - FEMUR FRACTURE [None]
  - POLLAKIURIA [None]
  - ANAEMIA [None]
  - RETINOPATHY HYPERTENSIVE [None]
  - BLOOD CHOLESTEROL INCREASED [None]
  - BACK PAIN [None]
